FAERS Safety Report 16348856 (Version 3)
Quarter: 2021Q2

REPORT INFORMATION
  Report Type: Spontaneous
  Country: US (occurrence: BR)
  Receive Date: 20190523
  Receipt Date: 20210428
  Transmission Date: 20210716
  Serious: Yes (Other)
  Sender: FDA-Public Use
  Company Number: BR-BIOMARINAP-BR-2019-123809

PATIENT
  Age: 17 Year
  Sex: Male
  Weight: 43 kg

DRUGS (5)
  1. ENALAPRIL [Concomitant]
     Active Substance: ENALAPRIL
     Indication: PRODUCT USED FOR UNKNOWN INDICATION
     Dosage: UNK
     Dates: start: 2014
  2. GENTIN [Concomitant]
     Indication: PRODUCT USED FOR UNKNOWN INDICATION
     Dosage: UNK
     Dates: start: 201903
  3. ALDURAZYME [Suspect]
     Active Substance: LARONIDASE
     Indication: MUCOPOLYSACCHARIDOSIS
     Dosage: UNK, QW
     Route: 042
     Dates: start: 20170101
  4. PURAN [Suspect]
     Active Substance: LEVOTHYROXINE SODIUM
     Indication: THYROID DISORDER
     Dosage: 37.5 MICROGRAM
     Route: 065
     Dates: start: 2018
  5. FOLIC ACID. [Concomitant]
     Active Substance: FOLIC ACID
     Indication: PRODUCT USED FOR UNKNOWN INDICATION
     Dosage: UNK
     Dates: start: 2017

REACTIONS (22)
  - Deafness bilateral [Recovering/Resolving]
  - Fatigue [Unknown]
  - Exostosis [Recovering/Resolving]
  - Influenza [Recovered/Resolved]
  - Pyrexia [Unknown]
  - Respiratory disorder [Unknown]
  - Disease progression [Recovering/Resolving]
  - Asthenia [Recovering/Resolving]
  - Limb asymmetry [Recovering/Resolving]
  - Therapeutic response decreased [Recovering/Resolving]
  - Milk allergy [Recovering/Resolving]
  - Rhinitis [Unknown]
  - Cardiac disorder [Unknown]
  - Speech disorder [Unknown]
  - Back pain [Recovering/Resolving]
  - Anaemia [Recovering/Resolving]
  - Bone atrophy [Recovering/Resolving]
  - Thyroid disorder [Recovering/Resolving]
  - Rhinitis allergic [Unknown]
  - Chromaturia [Recovering/Resolving]
  - Eating disorder [Unknown]
  - Sneezing [Unknown]

NARRATIVE: CASE EVENT DATE: 2016
